FAERS Safety Report 18697352 (Version 1)
Quarter: 2021Q1

REPORT INFORMATION
  Report Type: Spontaneous
  Country: US (occurrence: US)
  Receive Date: 20210104
  Receipt Date: 20210104
  Transmission Date: 20210419
  Serious: Yes (Hospitalization)
  Sender: FDA-Public Use
  Company Number: US-NOVOPROD-777524

PATIENT
  Age: 61 Year
  Sex: Female
  Weight: 117 kg

DRUGS (2)
  1. NOVOLIN N [Suspect]
     Active Substance: INSULIN HUMAN
     Indication: PRODUCT USED FOR UNKNOWN INDICATION
     Dosage: UNK
     Route: 065
  2. PROTAMINE [Suspect]
     Active Substance: PROTAMINE
     Indication: PROCOAGULANT THERAPY
     Dosage: 50MG OVER 5 MINUTES
     Route: 042
     Dates: start: 20201123

REACTIONS (2)
  - Cardiac arrest [Recovered/Resolved]
  - Angioplasty [Unknown]

NARRATIVE: CASE EVENT DATE: 20201123
